FAERS Safety Report 9594392 (Version 1)
Quarter: 2013Q4

REPORT INFORMATION
  Report Type: Spontaneous
  Country: US (occurrence: US)
  Receive Date: 20131004
  Receipt Date: 20131004
  Transmission Date: 20140711
  Serious: No
  Sender: FDA-Public Use
  Company Number: US-PURDUE-USA-2012-0092204

PATIENT
  Age: 61 Year
  Sex: Female
  Weight: 65.31 kg

DRUGS (6)
  1. BUTRANS [Suspect]
     Indication: ARTHRALGIA
     Dosage: 5 MCG/HR, UNK
     Route: 062
     Dates: start: 20120811, end: 20120818
  2. VICODIN [Concomitant]
     Indication: PAIN
     Dosage: 10/325 MG BID
     Route: 048
  3. APRESOLINE [Concomitant]
     Indication: HYPERTENSION
     Dosage: 0.25 MG, QAM
     Route: 048
  4. APRESOLINE [Concomitant]
     Dosage: 0.5 MG, QHS
  5. CARAFATE [Concomitant]
     Indication: PRODUCT USED FOR UNKNOWN INDICATION
     Dosage: UNK
     Route: 048
  6. NEXIUM                             /01479302/ [Concomitant]
     Indication: PRODUCT USED FOR UNKNOWN INDICATION
     Dosage: UNK

REACTIONS (1)
  - Somnolence [Not Recovered/Not Resolved]
